FAERS Safety Report 7947079-8 (Version None)
Quarter: 2011Q4

REPORT INFORMATION
  Report Type: 
  Country: None (occurrence: None)
  Receive Date: 20111129
  Receipt Date: 20111019
  Transmission Date: 20120403
  Serious: No
  Sender: FDA-Public Use
  Company Number: US-ASTRAZENECA-2011SE62892

PATIENT
  Sex: Male

DRUGS (1)
  1. VIMOVO [Suspect]
     Route: 048
     Dates: start: 20111017

REACTIONS (2)
  - EYE HAEMORRHAGE [None]
  - ERYTHEMA OF EYELID [None]
